FAERS Safety Report 8026806-8 (Version None)
Quarter: 2011Q4

REPORT INFORMATION
  Report Type: 
  Country: None (occurrence: None)
  Receive Date: 20111130
  Receipt Date: 20110419
  Transmission Date: 20120403
  Serious: Yes (Life-Threatening, Hospitalization, Other)
  Sender: FDA-Public Use
  Company Number: US201102004453

PATIENT
  Age: 64 Year
  Sex: Male

DRUGS (2)
  1. METFORMIN HCL [Concomitant]
  2. BYETTA [Suspect]
     Indication: TYPE 2 DIABETES MELLITUS
     Dosage: 5 UG, BID, SUBCUTANEOUS, 10 UG, BID
     Route: 058

REACTIONS (2)
  - WEIGHT DECREASED [None]
  - ANAPHYLACTIC REACTION [None]
